FAERS Safety Report 24524921 (Version 4)
Quarter: 2025Q3

REPORT INFORMATION
  Report Type: Spontaneous
  Country: US (occurrence: US)
  Receive Date: 20241019
  Receipt Date: 20250709
  Transmission Date: 20251021
  Serious: No
  Sender: SANOFI AVENTIS
  Company Number: US-SA-2024SA288110

PATIENT
  Age: 13 Year
  Sex: Male
  Weight: 103.91 kg

DRUGS (2)
  1. ALPROLIX [Suspect]
     Active Substance: EFTRENONACOG ALFA
     Indication: Factor IX deficiency
     Dosage: 6000 IU, QW
     Route: 042
     Dates: start: 202305
  2. ALPROLIX [Suspect]
     Active Substance: EFTRENONACOG ALFA
     Indication: Factor IX deficiency
     Dosage: 6000 IU, QW
     Route: 042
     Dates: start: 202305

REACTIONS (5)
  - Epistaxis [Unknown]
  - Epistaxis [Unknown]
  - Epistaxis [Not Recovered/Not Resolved]
  - Weight increased [Unknown]
  - Epistaxis [Unknown]

NARRATIVE: CASE EVENT DATE: 20240918
